FAERS Safety Report 6372024-9 (Version None)
Quarter: 2009Q3

REPORT INFORMATION
  Report Type: 
  Country: None (occurrence: None)
  Receive Date: 20090917
  Receipt Date: 20090904
  Transmission Date: 20100115
  Serious: Yes (Other)
  Sender: FDA-Public Use
  Company Number: ADR23392009

PATIENT
  Sex: Female

DRUGS (5)
  1. PRAVASTATIN [Suspect]
     Indication: HYPERCHOLESTEROLAEMIA
     Dosage: 40 MG ORAL
     Route: 048
     Dates: start: 20071101, end: 20080501
  2. CRESTOR [Concomitant]
  3. INEGY (1DF) [Concomitant]
  4. NIASPAN [Concomitant]
  5. ATORVASTATIN CALCIUM [Concomitant]

REACTIONS (3)
  - FLUSHING [None]
  - MYOPATHY [None]
  - PRURITUS GENERALISED [None]
